FAERS Safety Report 4364038-5 (Version None)
Quarter: 2004Q2

REPORT INFORMATION
  Report Type: 
  Country: None (occurrence: None)
  Receive Date: 20040519
  Receipt Date: 20040510
  Transmission Date: 20050107
  Serious: Yes (Death, Hospitalization, Other)
  Sender: FDA-Public Use
  Company Number: 2004206099JP

PATIENT
  Age: 57 Year
  Sex: Female
  Weight: 40 kg

DRUGS (2)
  1. PROVERA [Suspect]
     Indication: HORMONE REPLACEMENT THERAPY
     Dosage: 2.5 MG, QD, ORAL
     Route: 048
     Dates: start: 19961014, end: 19980501
  2. PREMARIN [Suspect]
     Indication: HORMONE REPLACEMENT THERAPY
     Dosage: 0.625 MG, QD, ORAL
     Route: 048
     Dates: start: 19961001, end: 19980501

REACTIONS (5)
  - BREAST CANCER METASTATIC [None]
  - BREAST CANCER RECURRENT [None]
  - MALIGNANT NEOPLASM PROGRESSION [None]
  - METASTASES TO BONE [None]
  - METASTASES TO CENTRAL NERVOUS SYSTEM [None]
